FAERS Safety Report 20688766 (Version 3)
Quarter: 2022Q2

REPORT INFORMATION
  Report Type: Report from Study
  Country: US (occurrence: US)
  Receive Date: 20220408
  Receipt Date: 20220519
  Transmission Date: 20220720
  Serious: No
  Sender: FDA-Public Use
  Company Number: US-NOVARTISTESTPH-NVSC2022US079793

PATIENT
  Sex: Male

DRUGS (1)
  1. ZIEXTENZO [Suspect]
     Active Substance: PEGFILGRASTIM-BMEZ
     Indication: Product used for unknown indication
     Dosage: UNK (3 INJECTIONS)
     Route: 065
     Dates: start: 202112, end: 202202

REACTIONS (4)
  - White blood cell count increased [Unknown]
  - Haemoglobin increased [Unknown]
  - Hypersensitivity [Unknown]
  - Bone pain [Unknown]
